FAERS Safety Report 15769054 (Version 2)
Quarter: 2020Q1

REPORT INFORMATION
  Report Type: Spontaneous
  Country: US (occurrence: US)
  Receive Date: 20181228
  Receipt Date: 20200219
  Transmission Date: 20200409
  Serious: Yes (Death)
  Sender: FDA-Public Use
  Company Number: US-VIFOR (INTERNATIONAL) INC.-VIT-2018-12699

PATIENT
  Sex: Male

DRUGS (12)
  1. ALLOPURINOL. [Concomitant]
     Active Substance: ALLOPURINOL
  2. CLONIDINE HCL [Concomitant]
     Active Substance: CLONIDINE HYDROCHLORIDE
  3. MIDODRINE HCL [Concomitant]
     Active Substance: MIDODRINE HYDROCHLORIDE
  4. CYCLOBENZAPRINE HCL [Concomitant]
     Active Substance: CYCLOBENZAPRINE HYDROCHLORIDE
  5. COUMADIN [Concomitant]
     Active Substance: WARFARIN SODIUM
  6. KEPPRA [Concomitant]
     Active Substance: LEVETIRACETAM
  7. LEVOTHYROXINE SODIUM. [Concomitant]
     Active Substance: LEVOTHYROXINE SODIUM
  8. OXYCODONE HYDROCHLORIDE. [Concomitant]
     Active Substance: OXYCODONE HYDROCHLORIDE
  9. CALCIUM ACETATE. [Concomitant]
     Active Substance: CALCIUM ACETATE
  10. COLACE [Concomitant]
     Active Substance: DOCUSATE SODIUM
  11. VELTASSA [Suspect]
     Active Substance: PATIROMER
     Indication: END STAGE RENAL DISEASE
     Route: 048
     Dates: start: 20180928
  12. RENVELA [Concomitant]
     Active Substance: SEVELAMER CARBONATE

REACTIONS (1)
  - Death [Fatal]
